FAERS Safety Report 8489916-7 (Version None)
Quarter: 2012Q3

REPORT INFORMATION
  Report Type: 
  Country: None (occurrence: None)
  Receive Date: 20120705
  Receipt Date: 20120626
  Transmission Date: 20120928
  Serious: Yes (Death, Hospitalization, Other)
  Sender: FDA-Public Use
  Company Number: IT-JNJFOC-20120613767

PATIENT
  Age: 57 Year
  Sex: Male

DRUGS (3)
  1. FLUOROQUINOLONES [Concomitant]
     Indication: ANTIBIOTIC PROPHYLAXIS
     Route: 065
  2. ACYCLOVIR [Concomitant]
     Indication: ANTIVIRAL PROPHYLAXIS
     Route: 065
  3. CLADRIBINE [Suspect]
     Indication: HAIRY CELL LEUKAEMIA
     Dosage: 5 DAY ADMINISTRATION
     Route: 065
     Dates: start: 20090301

REACTIONS (2)
  - NEUTROPENIA [None]
  - ENCEPHALITIS [None]
